FAERS Safety Report 6438467-X (Version None)
Quarter: 2009Q4

REPORT INFORMATION
  Report Type: 
  Country: None (occurrence: None)
  Receive Date: 20091110
  Receipt Date: 20091028
  Transmission Date: 20100525
  Serious: Yes (Death)
  Sender: FDA-Public Use
  Company Number: 007912

PATIENT
  Age: 73 Year
  Sex: Male

DRUGS (17)
  1. PLETAL [Suspect]
     Indication: CEREBRAL INFARCTION
     Dosage: 100 MG, BID, ORAL
     Route: 048
     Dates: end: 20090926
  2. BAYASPIRIN (ACETYLSALICYLIC ACID) TABLET [Suspect]
     Indication: CEREBRAL INFARCTION
     Dosage: 100 MG, DAILY DOSE, ORAL
     Route: 048
     Dates: end: 20090917
  3. ANPLAG (SARPOGRELATE HYDROCHLORIDE) TABLET [Suspect]
     Indication: ARTERIAL OCCLUSIVE DISEASE
     Dosage: 100 MG, TID; ORAL
     Route: 048
     Dates: end: 20090926
  4. UNASYN [Suspect]
     Dosage: INTRAVENOUS
     Route: 042
     Dates: start: 20090912, end: 20090920
  5. VANCOMYCIN HCL [Suspect]
     Indication: STAPHYLOCOCCAL INFECTION
     Dosage: 0.5 G, DAILY DOSE; INTRAVENOUS
     Route: 042
     Dates: start: 20090921, end: 20090923
  6. PACETCOOL (CEFOTIAM HYDROCHLORIDE) INJECTION [Concomitant]
  7. LOXONIN (LOXOPROFEN SODIUM) [Concomitant]
  8. DEPAKENE-R JPN (VALPROATE SODIUM) [Concomitant]
  9. MAGNESIUM OXIDE (MAGNESIUM OXIDE) [Concomitant]
  10. DEPAS (ETIZOLAM) [Concomitant]
  11. SEROQUEL [Concomitant]
  12. CLONAZEPAM [Concomitant]
  13. PROMAC (POLAPREZINC) TABLET [Concomitant]
  14. LIPITOR [Concomitant]
  15. CONIEL (BENIDIPINE HYDROCHLORIDE) TABLET [Concomitant]
  16. FAMOTIDINE [Concomitant]
  17. SIGMART (NICORANDIL) TABLET [Concomitant]

REACTIONS (10)
  - ANTIBIOTIC RESISTANT STAPHYLOCOCCUS TEST POSITIVE [None]
  - ASPIRATION [None]
  - BACTERIAL TEST POSITIVE [None]
  - DISBACTERIOSIS [None]
  - HAEMATOCHEZIA [None]
  - HAEMOPTYSIS [None]
  - HAEMORRHAGIC DIATHESIS [None]
  - PNEUMONIA [None]
  - PYREXIA [None]
  - RESPIRATORY FAILURE [None]
